FAERS Safety Report 19393490 (Version 1)
Quarter: 2021Q2

REPORT INFORMATION
  Report Type: Spontaneous
  Country: AR (occurrence: AR)
  Receive Date: 20210609
  Receipt Date: 20210609
  Transmission Date: 20210717
  Serious: Yes (Hospitalization)
  Sender: FDA-Public Use
  Company Number: AR-ROCHE-2845089

PATIENT
  Age: 47 Year
  Sex: Female

DRUGS (3)
  1. ACTILYSE [Suspect]
     Active Substance: ALTEPLASE
     Indication: PELVIC VENOUS THROMBOSIS
  2. ACTILYSE [Suspect]
     Active Substance: ALTEPLASE
     Indication: VENA CAVA THROMBOSIS
     Dosage: FOR 12 HOURS
     Route: 050
     Dates: start: 20210514
  3. ACTILYSE [Suspect]
     Active Substance: ALTEPLASE
     Indication: RENAL VEIN THROMBOSIS

REACTIONS (2)
  - Off label use [Unknown]
  - Vascular access site haemorrhage [Unknown]

NARRATIVE: CASE EVENT DATE: 20210514
